FAERS Safety Report 24200344 (Version 1)
Quarter: 2024Q3

REPORT INFORMATION
  Report Type: Spontaneous
  Country: US (occurrence: None)
  Receive Date: 20240809
  Receipt Date: 20240809
  Transmission Date: 20241017
  Serious: Yes (Other)
  Sender: Public
  Company Number: None

PATIENT
  Age: 48 Year
  Sex: Female
  Weight: 65.25 kg

DRUGS (1)
  1. HERBALS\MUSHROOMS UNSPECIFIED [Suspect]
     Active Substance: HERBALS\MUSHROOMS UNSPECIFIED
     Indication: Anxiety
     Route: 048
     Dates: start: 20240808, end: 20240808

REACTIONS (7)
  - Nonspecific reaction [None]
  - Illness [None]
  - Tremor [None]
  - Illness [None]
  - Movement disorder [None]
  - Seizure [None]
  - Muscle disorder [None]

NARRATIVE: CASE EVENT DATE: 20240808
